FAERS Safety Report 4673593-7 (Version None)
Quarter: 2005Q2

REPORT INFORMATION
  Report Type: 
  Country: None (occurrence: None)
  Receive Date: 20050523
  Receipt Date: 20050512
  Transmission Date: 20051028
  Serious: Yes (Hospitalization)
  Sender: FDA-Public Use
  Company Number: 213930

PATIENT
  Age: 63 Year
  Sex: Female
  Weight: 109.1 kg

DRUGS (5)
  1. AVASTIN [Suspect]
     Indication: COLON CANCER METASTATIC
     Dosage: 5 MG/KG, INTRAVENOUS
     Route: 042
     Dates: start: 20050405
  2. ERLOTINIB(ERLOTINIB) TABLET, 150MG [Suspect]
     Indication: COLON CANCER METASTATIC
     Dosage: 150 MG, ORAL
     Route: 048
     Dates: start: 20050405
  3. OXALIPLATIN (OXALIPLATIN) [Suspect]
     Indication: COLON CANCER METASTATIC
     Dosage: 85 MG/M2, IV BOLUS
     Route: 040
     Dates: start: 20050405
  4. LEUCOVORIN CALCIUM [Suspect]
     Indication: COLON CANCER METASTATIC
     Dosage: 400 MG/M2, IV BOLUS
     Route: 040
     Dates: start: 20050405
  5. FLUOROURACIL [Suspect]
     Indication: COLON CANCER METASTATIC
     Dosage: 1200 MG/M2
     Dates: start: 20050405

REACTIONS (1)
  - FEBRILE NEUTROPENIA [None]
